FAERS Safety Report 14140524 (Version 1)
Quarter: 2017Q4

REPORT INFORMATION
  Report Type: Spontaneous
  Country: US (occurrence: None)
  Receive Date: 20171027
  Receipt Date: 20171027
  Transmission Date: 20180321
  Serious: No
  Sender: FDA-Public Use
  Company Number: None

PATIENT
  Age: 71 Year
  Sex: Female

DRUGS (16)
  1. SULFAMETH/TMP [Concomitant]
     Active Substance: SULFAMETHOXAZOLE\TRIMETHOPRIM
  2. ACTOS [Concomitant]
     Active Substance: PIOGLITAZONE HYDROCHLORIDE
  3. GABAPENTIN. [Concomitant]
     Active Substance: GABAPENTIN
  4. LEUCOVORIN. [Concomitant]
     Active Substance: LEUCOVORIN
  5. OXYBUTYNIN. [Concomitant]
     Active Substance: OXYBUTYNIN CHLORIDE
  6. IBUPROFEN. [Concomitant]
     Active Substance: IBUPROFEN
  7. METOPROLOL. [Concomitant]
     Active Substance: METOPROLOL
  8. LOSARTAN/HCTZ [Concomitant]
     Active Substance: HYDROCHLOROTHIAZIDE\LOSARTAN
  9. GLIMEPIRIDE. [Concomitant]
     Active Substance: GLIMEPIRIDE
  10. VESICARE [Concomitant]
     Active Substance: SOLIFENACIN SUCCINATE
  11. JANUVIA [Concomitant]
     Active Substance: SITAGLIPTIN PHOSPHATE
  12. METFORMIN [Concomitant]
     Active Substance: METFORMIN HYDROCHLORIDE
  13. DARAPRIM [Suspect]
     Active Substance: PYRIMETHAMINE
     Indication: TOXOPLASMOSIS
     Dosage: FREQUENCY - 3 TABLETS ONCE DAILY
     Route: 048
     Dates: start: 20171013
  14. SIMVASTATIN. [Concomitant]
     Active Substance: SIMVASTATIN
  15. LISINOPRIL. [Concomitant]
     Active Substance: LISINOPRIL
  16. LANTUS [Concomitant]
     Active Substance: INSULIN GLARGINE

REACTIONS (1)
  - Vomiting [None]

NARRATIVE: CASE EVENT DATE: 20171020
